FAERS Safety Report 9209524 (Version 1)
Quarter: 2013Q1

REPORT INFORMATION
  Report Type: Spontaneous
  Country: US (occurrence: None)
  Receive Date: 20120813
  Receipt Date: 20120813
  Transmission Date: 20140127
  Serious: Yes (Other)
  Sender: FDA-Public Use
  Company Number: AUR-APL-2012-02930

PATIENT
  Age: 62 Year
  Sex: Female

DRUGS (1)
  1. TERBINAFINE (TERBINAFINE) [Suspect]
     Indication: PRODUCT USED FOR UNKNOWN INDICATION

REACTIONS (1)
  - Acute hepatic failure [None]
